FAERS Safety Report 6699374-0 (Version None)
Quarter: 2010Q2

REPORT INFORMATION
  Report Type: 
  Country: None (occurrence: None)
  Receive Date: 20100427
  Receipt Date: 20100419
  Transmission Date: 20101027
  Serious: Yes (Hospitalization)
  Sender: FDA-Public Use
  Company Number: FR-ABBOTT-10P-056-0639784-00

PATIENT
  Sex: Female

DRUGS (12)
  1. KALETRA [Suspect]
     Indication: PROPHYLAXIS AGAINST HIV INFECTION
     Route: 048
     Dates: start: 20100217, end: 20100321
  2. PARACETAMOL [Suspect]
     Indication: DRUG USE FOR UNKNOWN INDICATION
  3. COMBIVIR [Suspect]
     Indication: PROPHYLAXIS AGAINST HIV INFECTION
     Route: 048
     Dates: start: 20100217, end: 20100321
  4. BACLOFEN [Suspect]
     Indication: ALCOHOLISM
     Dosage: 75MG/D UNTIL 19-FEB THEN 90MG/D UNTIL 05-MAR AND THEN 105MG/D
     Dates: start: 20100226, end: 20100321
  5. FLUANXOL [Suspect]
     Indication: MAJOR DEPRESSION
     Route: 030
     Dates: start: 20100308, end: 20100308
  6. CODEINE SUL TAB [Concomitant]
     Indication: ABDOMINAL PAIN
     Route: 048
  7. NOCTAMIDE [Concomitant]
     Indication: DRUG USE FOR UNKNOWN INDICATION
     Route: 048
     Dates: start: 20091001
  8. ZOPICLONE [Concomitant]
     Indication: DRUG USE FOR UNKNOWN INDICATION
     Route: 048
     Dates: start: 20090701
  9. FLUOXETINE [Concomitant]
     Indication: DRUG USE FOR UNKNOWN INDICATION
     Route: 048
     Dates: start: 20090801
  10. AKINETON PR (  BIPERIDENE ) [Concomitant]
     Indication: DRUG USE FOR UNKNOWN INDICATION
     Route: 048
     Dates: start: 20100317
  11. EDUCTYL PR (POTASSIUM TARTRATE, BICARBONATE OF SODIUM ) [Concomitant]
     Indication: DRUG USE FOR UNKNOWN INDICATION
  12. THERALENE [Concomitant]
     Indication: DRUG USE FOR UNKNOWN INDICATION
     Dates: start: 20100219, end: 20100317

REACTIONS (2)
  - HEPATITIS FULMINANT [None]
  - RENAL FAILURE ACUTE [None]
